FAERS Safety Report 15925710 (Version 2)
Quarter: 2019Q1

REPORT INFORMATION
  Report Type: Spontaneous
  Country: US (occurrence: US)
  Receive Date: 20190205
  Receipt Date: 20190219
  Transmission Date: 20190417
  Serious: Yes (Life-Threatening, Other)
  Sender: FDA-Public Use
  Company Number: US-ALLERGAN-1845883US

PATIENT
  Age: 43 Year
  Sex: Female

DRUGS (8)
  1. IBUPROFEN. [Concomitant]
     Active Substance: IBUPROFEN
     Dosage: 1-2 TIMES A WEEK
     Dates: end: 201808
  2. NORCO [Concomitant]
     Active Substance: ACETAMINOPHEN\HYDROCODONE BITARTRATE
     Dosage: 1-2 DF,  1-2 TIMES A WEEK
  3. TYLENOL [Concomitant]
     Active Substance: ACETAMINOPHEN
     Indication: INSOMNIA
     Dosage: 1-2 TIMES PER WEEK
  4. NORCO [Concomitant]
     Active Substance: ACETAMINOPHEN\HYDROCODONE BITARTRATE
     Indication: PAIN
     Dosage: 3-4 DF A WEEK
  5. IBUPROFEN. [Concomitant]
     Active Substance: IBUPROFEN
     Dosage: 2-3 TIMES A WEEK
     Dates: start: 201808, end: 201809
  6. ORTHO NOVUM [Concomitant]
     Active Substance: MESTRANOL\NORETHINDRONE
     Indication: CONTRACEPTION
     Dosage: UNK
  7. BOTOX [Suspect]
     Active Substance: ONABOTULINUMTOXINA
     Indication: MIGRAINE
     Dosage: UNK, SINGLE
     Route: 030
     Dates: start: 20180918, end: 20180918
  8. IBUPROFEN. [Concomitant]
     Active Substance: IBUPROFEN
     Indication: LIMB INJURY
     Dosage: 1-2 TIMES A WEEK

REACTIONS (2)
  - Anaphylactic reaction [Recovered/Resolved]
  - Product storage error [Unknown]

NARRATIVE: CASE EVENT DATE: 20180918
